FAERS Safety Report 23722370 (Version 4)
Quarter: 2025Q2

REPORT INFORMATION
  Report Type: Spontaneous
  Country: US (occurrence: US)
  Receive Date: 20240409
  Receipt Date: 20250606
  Transmission Date: 20250716
  Serious: No
  Sender: NOVEN
  Company Number: US-NOVEN PHARMACEUTICALS, INC.-2024-NOV-US000325

PATIENT
  Age: 52 Year
  Sex: Female

DRUGS (1)
  1. XELSTRYM [Suspect]
     Active Substance: DEXTROAMPHETAMINE
     Indication: Attention deficit hyperactivity disorder
     Route: 062

REACTIONS (5)
  - Product ineffective [Not Recovered/Not Resolved]
  - Product administration error [Not Recovered/Not Resolved]
  - Device issue [Not Recovered/Not Resolved]
  - Device breakage [Not Recovered/Not Resolved]
  - Product adhesion issue [Not Recovered/Not Resolved]
